FAERS Safety Report 7464825-0 (Version None)
Quarter: 2011Q2

REPORT INFORMATION
  Report Type: 
  Country: None (occurrence: None)
  Receive Date: 20110509
  Receipt Date: 20110408
  Transmission Date: 20111010
  Serious: Yes (Hospitalization, Other)
  Sender: FDA-Public Use
  Company Number: US-BAYER-201014777NA

PATIENT
  Age: 29 Year
  Sex: Female
  Weight: 56.689 kg

DRUGS (12)
  1. YAZ [Suspect]
     Indication: PREMENSTRUAL SYNDROME
  2. MORPHINE [Concomitant]
     Indication: PAIN
  3. YASMIN [Suspect]
     Indication: PREMENSTRUAL SYNDROME
  4. YASMIN [Suspect]
  5. NEURONTIN [Concomitant]
     Indication: PAIN IN EXTREMITY
  6. YAZ [Suspect]
     Indication: ACNE
     Dosage: AS USED DOSE: UNK
     Route: 048
  7. YASMIN [Suspect]
     Indication: ACNE
  8. OXYCONTIN [Concomitant]
     Indication: PAIN IN EXTREMITY
  9. YAZ [Suspect]
     Indication: DYSMENORRHOEA
  10. YAZ [Suspect]
  11. LORTAB [Concomitant]
     Indication: PAIN IN EXTREMITY
  12. YASMIN [Suspect]
     Indication: DYSMENORRHOEA

REACTIONS (3)
  - DEEP VEIN THROMBOSIS [None]
  - NERVE INJURY [None]
  - PELVIC VENOUS THROMBOSIS [None]
